FAERS Safety Report 17867989 (Version 1)
Quarter: 2020Q2

REPORT INFORMATION
  Report Type: Spontaneous
  Country: US (occurrence: US)
  Receive Date: 20200605
  Receipt Date: 20200605
  Transmission Date: 20200714
  Serious: Yes (Other)
  Sender: FDA-Public Use
  Company Number: NVSC2020US151628

PATIENT
  Sex: Female
  Weight: 95.25 kg

DRUGS (6)
  1. DOXEPIN HCL CAPSULES USP [Suspect]
     Active Substance: DOXEPIN HYDROCHLORIDE
     Indication: PRODUCT USED FOR UNKNOWN INDICATION
     Route: 065
  2. PROZAC [Concomitant]
     Active Substance: FLUOXETINE HYDROCHLORIDE
     Indication: PRODUCT USED FOR UNKNOWN INDICATION
     Dosage: 40 MG
     Route: 065
  3. AMANTADINE. [Suspect]
     Active Substance: AMANTADINE HYDROCHLORIDE
     Indication: FATIGUE
     Route: 065
  4. BACLOFEN. [Concomitant]
     Active Substance: BACLOFEN
     Indication: PRODUCT USED FOR UNKNOWN INDICATION
     Dosage: 10 MG
     Route: 065
  5. LYRICA [Concomitant]
     Active Substance: PREGABALIN
     Indication: PRODUCT USED FOR UNKNOWN INDICATION
     Route: 065
  6. IBUPROFEN TABLETS USP [Suspect]
     Active Substance: IBUPROFEN
     Indication: PAIN
     Route: 065

REACTIONS (15)
  - Fibromyalgia [Unknown]
  - Neuralgia [Unknown]
  - Neurological symptom [Unknown]
  - Fatigue [Unknown]
  - Insomnia [Unknown]
  - Hot flush [Unknown]
  - Pain [Unknown]
  - Depression [Unknown]
  - Cognitive disorder [Unknown]
  - Multiple sclerosis [Unknown]
  - Back pain [Unknown]
  - Migraine [Unknown]
  - Anxiety [Unknown]
  - Muscle spasticity [Unknown]
  - Brain injury [Unknown]
